FAERS Safety Report 9164917 (Version 1)
Quarter: 2013Q1

REPORT INFORMATION
  Report Type: Spontaneous
  Country: AU (occurrence: None)
  Receive Date: 20130222
  Receipt Date: 20130222
  Transmission Date: 20140127
  Serious: Yes (Hospitalization)
  Sender: FDA-Public Use
  Company Number: SP06409

PATIENT
  Sex: Male

DRUGS (1)
  1. XIFAXAN [Suspect]
     Indication: DIVERTICULITIS
     Dosage: (600 MG, DAILY FOR ONE WEEK EACXH MONTH)
     Route: 048

REACTIONS (1)
  - Hypertension [None]
